FAERS Safety Report 18801299 (Version 8)
Quarter: 2022Q1

REPORT INFORMATION
  Report Type: Spontaneous
  Country: US (occurrence: US)
  Receive Date: 20210128
  Receipt Date: 20220209
  Transmission Date: 20220424
  Serious: Yes (Disabling)
  Sender: FDA-Public Use
  Company Number: US-BIOMARINAP-US-2021-134423

PATIENT
  Age: 32 Year
  Sex: Male

DRUGS (4)
  1. ALDURAZYME [Suspect]
     Active Substance: LARONIDASE
     Indication: Mucopolysaccharidosis I
     Dosage: 40.6 MILLIGRAM, QW
     Route: 041
     Dates: start: 20040824
  2. ALDURAZYME [Suspect]
     Active Substance: LARONIDASE
     Dosage: 40.6 MILLIGRAM, QW
     Route: 041
  3. ALDURAZYME [Suspect]
     Active Substance: LARONIDASE
     Dosage: 0.58 MILLIGRAM/KILOGRAM, QW
     Route: 041
     Dates: start: 202105
  4. ALDURAZYME [Suspect]
     Active Substance: LARONIDASE
     Dosage: 40.6 MILLIGRAM
     Route: 041
     Dates: start: 20220128

REACTIONS (11)
  - Mobility decreased [Not Recovered/Not Resolved]
  - Weight increased [Not Recovered/Not Resolved]
  - Migraine [Recovered/Resolved]
  - Gastrointestinal disorder [Unknown]
  - Malaise [Recovering/Resolving]
  - Headache [Recovered/Resolved]
  - Productive cough [Not Recovered/Not Resolved]
  - Retching [Not Recovered/Not Resolved]
  - Asthenia [Not Recovered/Not Resolved]
  - Vomiting [Not Recovered/Not Resolved]
  - Arthralgia [Not Recovered/Not Resolved]

NARRATIVE: CASE EVENT DATE: 20210901
